FAERS Safety Report 8600883-5 (Version None)
Quarter: 2012Q3

REPORT INFORMATION
  Report Type: 
  Country: None (occurrence: None)
  Receive Date: 20120817
  Receipt Date: 20120809
  Transmission Date: 20120928
  Serious: Yes (Other)
  Sender: FDA-Public Use
  Company Number: US-BAYER-2012-022185

PATIENT
  Sex: Female

DRUGS (1)
  1. MIRENA [Suspect]
     Indication: CONTRACEPTION
     Dosage: 20 MCG/24HR, CONT
     Dates: start: 20110501, end: 20120229

REACTIONS (3)
  - OVARIAN CYST RUPTURED [None]
  - ECTOPIC PREGNANCY WITH INTRAUTERINE DEVICE [None]
  - OVARIAN GERM CELL TERATOMA BENIGN [None]
